FAERS Safety Report 12729005 (Version 1)
Quarter: 2016Q3

REPORT INFORMATION
  Report Type: Spontaneous
  Country: US (occurrence: US)
  Receive Date: 20160908
  Receipt Date: 20160908
  Transmission Date: 20161109
  Serious: Yes (Other)
  Sender: FDA-Public Use
  Company Number: None

PATIENT
  Age: 71 Year
  Sex: Male
  Weight: 83.25 kg

DRUGS (12)
  1. AMIODARONE [Concomitant]
     Active Substance: AMIODARONE
  2. BYDUREON [Suspect]
     Active Substance: EXENATIDE
     Indication: DIABETES MELLITUS
     Dosage: OTHER STRENGTH:;OTHER DOSE:;OTHER FREQUENCY:WEEKLY;OTHER ROUTE:
     Route: 030
     Dates: start: 20160803, end: 20160810
  3. AEROSPAN [Concomitant]
     Active Substance: FLUNISOLIDE
  4. LEVOTHYROXINE SODIUM. [Concomitant]
     Active Substance: LEVOTHYROXINE SODIUM
  5. SYMBICORT [Concomitant]
     Active Substance: BUDESONIDE\FORMOTEROL FUMARATE DIHYDRATE
  6. PROAIR HFA [Concomitant]
     Active Substance: ALBUTEROL SULFATE
  7. OMEGA 3 OIL CAPSULES [Concomitant]
  8. BABY ASPIRIN [Concomitant]
     Active Substance: ASPIRIN
  9. AMLODIPINE BESYLATE. [Concomitant]
     Active Substance: AMLODIPINE BESYLATE
  10. LANTUS SOLOSTAR INSULIN PEN [Concomitant]
  11. TORSEMIDE. [Concomitant]
     Active Substance: TORSEMIDE
  12. ATORVASTATIN [Concomitant]
     Active Substance: ATORVASTATIN

REACTIONS (6)
  - Nausea [None]
  - Eating disorder [None]
  - Dizziness [None]
  - Back pain [None]
  - Vomiting projectile [None]
  - Injection site extravasation [None]

NARRATIVE: CASE EVENT DATE: 20160810
